FAERS Safety Report 16670894 (Version 1)
Quarter: 2019Q3

REPORT INFORMATION
  Report Type: Spontaneous
  Country: US (occurrence: US)
  Receive Date: 20190805
  Receipt Date: 20190805
  Transmission Date: 20191004
  Serious: No
  Sender: FDA-Public Use
  Company Number: US-RADIUS HEALTH INC.-2019US001461

PATIENT
  Sex: Female

DRUGS (4)
  1. TYMLOS [Suspect]
     Active Substance: ABALOPARATIDE
     Dosage: 80 MCG, QD
     Route: 058
     Dates: start: 20190326
  2. LOSARTAN. [Concomitant]
     Active Substance: LOSARTAN
     Indication: HYPERTENSION
     Dosage: 100 MG, QD
     Route: 065
  3. TYMLOS [Suspect]
     Active Substance: ABALOPARATIDE
     Indication: OSTEOPOROSIS POSTMENOPAUSAL
     Dosage: 80 MCG, QD
     Route: 058
     Dates: start: 20190326
  4. LOSARTAN. [Concomitant]
     Active Substance: LOSARTAN
     Dosage: 50 MG QD

REACTIONS (8)
  - Tremor [Unknown]
  - Heart rate irregular [Recovered/Resolved]
  - Blood pressure decreased [Not Recovered/Not Resolved]
  - Asthenia [Unknown]
  - Blood pressure fluctuation [Unknown]
  - Dizziness [Not Recovered/Not Resolved]
  - Muscle spasms [Recovered/Resolved]
  - Headache [Unknown]
